FAERS Safety Report 13615107 (Version 3)
Quarter: 2017Q3

REPORT INFORMATION
  Report Type: Report from Study
  Country: IE (occurrence: IE)
  Receive Date: 20170606
  Receipt Date: 20170712
  Transmission Date: 20171127
  Serious: Yes (Death, Hospitalization)
  Sender: FDA-Public Use
  Company Number: IE-TAKEDA-2017MPI004160

PATIENT
  Age: 83 Year
  Sex: Male

DRUGS (18)
  1. DEXAMETHASONE. [Concomitant]
     Active Substance: DEXAMETHASONE
     Dosage: 5 MG, 1/WEEK
     Route: 050
  2. THIAMIN [Concomitant]
     Active Substance: THIAMINE
     Dosage: 100 MG, QD
     Route: 050
  3. AMLODIPINE [Concomitant]
     Active Substance: AMLODIPINE BESYLATE
     Dosage: 1.25 MG, QD
     Route: 050
  4. INNOHEP [Concomitant]
     Active Substance: TINZAPARIN SODIUM
     Dosage: 0.45 ML, QD
     Route: 050
  5. ZOMETA [Concomitant]
     Active Substance: ZOLEDRONIC ACID
     Dosage: UNK UNK, MONTHLY
     Route: 065
  6. ALLOPURINOL. [Concomitant]
     Active Substance: ALLOPURINOL
     Dosage: 100 MG, QD
     Route: 050
  7. MAGNESIUM [Concomitant]
     Active Substance: MAGNESIUM
     Dosage: 5 MMOL, QD
     Route: 050
  8. CALCICHEW D3 [Concomitant]
     Active Substance: CALCIUM\CHOLECALCIFEROL
     Dosage: UNK UNK, BID
     Route: 050
  9. RAMPRIL [Concomitant]
     Active Substance: RAMIPRIL
     Dosage: 5 MG, QD
     Route: 065
  10. ARANESP [Concomitant]
     Active Substance: DARBEPOETIN ALFA
     Dosage: 300 ?G, Q3WEEKS
     Route: 050
  11. FOLIC ACID. [Concomitant]
     Active Substance: FOLIC ACID
     Dosage: 5 MG, QD
     Route: 050
  12. PANTOPRAZOLE [Concomitant]
     Active Substance: PANTOPRAZOLE
     Dosage: 40 MG, QD
     Route: 050
  13. VALTREX [Concomitant]
     Active Substance: VALACYCLOVIR HYDROCHLORIDE
     Dosage: 500 MG, BID
     Route: 050
  14. ATORVASTATIN [Concomitant]
     Active Substance: ATORVASTATIN
     Dosage: 20 MG, QD
     Route: 050
  15. VELCADE [Suspect]
     Active Substance: BORTEZOMIB
     Indication: PLASMA CELL MYELOMA
     Dosage: 1.3 MG/M2, UNK
     Route: 058
     Dates: start: 20150814
  16. RANITIDINE. [Concomitant]
     Active Substance: RANITIDINE
     Dosage: 150 MG, BID
     Route: 050
  17. PREGABALIN. [Concomitant]
     Active Substance: PREGABALIN
     Dosage: 50 MG, QD
     Route: 065
  18. LYRICA [Concomitant]
     Active Substance: PREGABALIN
     Dosage: 50 MG, TID
     Route: 050

REACTIONS (4)
  - Death [Fatal]
  - Diarrhoea [Not Recovered/Not Resolved]
  - Vomiting [Recovered/Resolved]
  - Hospitalisation [Unknown]

NARRATIVE: CASE EVENT DATE: 20170420
